FAERS Safety Report 25227079 (Version 2)
Quarter: 2025Q2

REPORT INFORMATION
  Report Type: Spontaneous
  Country: GB (occurrence: GB)
  Receive Date: 20250422
  Receipt Date: 20250429
  Transmission Date: 20250716
  Serious: Yes (Disabling, Other)
  Sender: GALPHARM INTERNATIONAL
  Company Number: None

PATIENT
  Age: 69 Year
  Sex: Male
  Weight: 100 kg

DRUGS (19)
  1. FEXOFENADINE [Suspect]
     Active Substance: FEXOFENADINE HYDROCHLORIDE
     Indication: Ill-defined disorder
     Dosage: 120 MG, QD(TAKE ONE TABLET ONCE A DAY BEFORE FOOD)
     Route: 065
     Dates: start: 20250311
  2. FOLIC ACID [Concomitant]
     Active Substance: FOLIC ACID
     Indication: Ill-defined disorder
     Dosage: 1 DF, QD (TAKE ONE TABLET ONCE A DAY FOR 4 MONTHS)
     Route: 065
     Dates: start: 20250115
  3. DOXYCYCLINE [Concomitant]
     Active Substance: DOXYCYCLINE
     Indication: Ill-defined disorder
     Route: 065
     Dates: start: 20250203, end: 20250208
  4. DOXYCYCLINE [Concomitant]
     Active Substance: DOXYCYCLINE
     Indication: Cough
     Route: 065
     Dates: start: 20250203, end: 20250208
  5. PREDNISOLONE [Concomitant]
     Active Substance: PREDNISOLONE
     Indication: Ill-defined disorder
     Dosage: 8 DF, QD (TAKE EIGHT TABLETS (40MG) ONCE A DAY FOR 7 DAYS...)
     Route: 065
     Dates: start: 20250203, end: 20250210
  6. CLOTRIMAZOLE [Concomitant]
     Active Substance: CLOTRIMAZOLE
     Indication: Ill-defined disorder
     Route: 061
     Dates: start: 20250211, end: 20250311
  7. CLOTRIMAZOLE [Concomitant]
     Active Substance: CLOTRIMAZOLE
     Indication: Skin infection
     Route: 061
     Dates: start: 20250211, end: 20250311
  8. AEROCHAMBER PLUS [Concomitant]
     Indication: Ill-defined disorder
     Dates: start: 20240509
  9. ATORVASTATIN [Concomitant]
     Active Substance: ATORVASTATIN
     Indication: Ill-defined disorder
     Dosage: 1 DF, QD (TAKE ONE TABLET ONCE A DAY AT NIGHT)
     Dates: start: 20241120
  10. CANDESARTAN [Concomitant]
     Active Substance: CANDESARTAN
     Indication: Ill-defined disorder
     Dosage: 1 DF, QD (TAKE ONE TABLET ONCE A DAY)
     Route: 065
     Dates: start: 20241120
  11. BECLOMETHASONE DIPROPIONATE [Concomitant]
     Active Substance: BECLOMETHASONE DIPROPIONATE
     Indication: Ill-defined disorder
     Dates: start: 20241120, end: 20250311
  12. EDOXABAN [Concomitant]
     Active Substance: EDOXABAN
     Indication: Ill-defined disorder
     Route: 065
     Dates: start: 20241120
  13. EDOXABAN [Concomitant]
     Active Substance: EDOXABAN
     Indication: Anticoagulant therapy
     Route: 048
     Dates: start: 20241120
  14. FLUCLOXACILLIN [Concomitant]
     Active Substance: FLUCLOXACILLIN
     Indication: Ill-defined disorder
     Route: 065
     Dates: start: 20241120
  15. FLUCLOXACILLIN [Concomitant]
     Active Substance: FLUCLOXACILLIN
     Indication: Scrotal disorder
     Dosage: 1 DF (1 FOUR TIMES A DAY-PRN FOR RECURRENT SCROTAL CE...)
     Route: 065
     Dates: start: 20241120
  16. OMEPRAZOLE [Concomitant]
     Active Substance: OMEPRAZOLE
     Indication: Ill-defined disorder
     Route: 065
     Dates: start: 20241120
  17. PENICILLIN V [Concomitant]
     Active Substance: PENICILLIN V
     Indication: Ill-defined disorder
     Route: 065
     Dates: start: 20241120
  18. ALBUTEROL [Concomitant]
     Active Substance: ALBUTEROL
     Indication: Ill-defined disorder
     Route: 065
     Dates: start: 20241120
  19. SOPROBEC [Concomitant]
     Indication: Ill-defined disorder
     Route: 055
     Dates: start: 20250311

REACTIONS (3)
  - Musculoskeletal stiffness [Recovered/Resolved]
  - Back pain [Recovered/Resolved]
  - Brain fog [Recovered/Resolved]
